FAERS Safety Report 4385329-8 (Version None)
Quarter: 2004Q2

REPORT INFORMATION
  Report Type: 
  Country: None (occurrence: None)
  Receive Date: 20040622
  Receipt Date: 20040610
  Transmission Date: 20050107
  Serious: Yes (Other)
  Sender: FDA-Public Use
  Company Number: GB-JNJFOC-20040602737

PATIENT
  Sex: Female

DRUGS (1)
  1. REMICADE [Suspect]
     Indication: PITYRIASIS RUBRA PILARIS
     Dosage: INTRAVENOUS
     Route: 042

REACTIONS (3)
  - ANOREXIA [None]
  - ARTHRALGIA [None]
  - FEELING ABNORMAL [None]
